FAERS Safety Report 18604653 (Version 3)
Quarter: 2021Q2

REPORT INFORMATION
  Report Type: Report from Study
  Country: US (occurrence: US)
  Receive Date: 20201211
  Receipt Date: 20210525
  Transmission Date: 20210717
  Serious: No
  Sender: FDA-Public Use
  Company Number: NVSC2020US325823

PATIENT
  Sex: Female

DRUGS (2)
  1. MAYZENT [Suspect]
     Active Substance: SIPONIMOD
     Indication: MULTIPLE SCLEROSIS
     Dosage: 2 MG, QD
     Route: 048
     Dates: start: 202010, end: 20201202
  2. MAYZENT [Suspect]
     Active Substance: SIPONIMOD
     Dosage: 1 MG/KG
     Route: 048

REACTIONS (1)
  - Maternal exposure during pregnancy [Unknown]
